FAERS Safety Report 14113741 (Version 2)
Quarter: 2017Q4

REPORT INFORMATION
  Report Type: Spontaneous
  Country: AU (occurrence: AU)
  Receive Date: 20171023
  Receipt Date: 20171117
  Transmission Date: 20180321
  Serious: Yes (Other)
  Sender: FDA-Public Use
  Company Number: AU-JNJFOC-20171014418

PATIENT
  Sex: Female
  Weight: 54 kg

DRUGS (2)
  1. SODIUM VALPROATE [Concomitant]
     Active Substance: VALPROATE SODIUM
     Indication: EPILEPSY
     Route: 065
  2. REMICADE [Suspect]
     Active Substance: INFLIXIMAB
     Indication: ANKYLOSING SPONDYLITIS
     Route: 042
     Dates: start: 20160808, end: 20170620

REACTIONS (3)
  - Lupus-like syndrome [Recovering/Resolving]
  - Ankylosing spondylitis [Unknown]
  - Demyelination [Recovering/Resolving]

NARRATIVE: CASE EVENT DATE: 2017
